FAERS Safety Report 9312256 (Version 1)
Quarter: 2013Q2

REPORT INFORMATION
  Report Type: Spontaneous
  Country: CO (occurrence: CO)
  Receive Date: 20130528
  Receipt Date: 20130528
  Transmission Date: 20140414
  Serious: Yes (Other)
  Sender: FDA-Public Use
  Company Number: CO-BAXTER-2013BAX018861

PATIENT
  Sex: 0

DRUGS (1)
  1. TISSUCOL KIT ADHESIVO BIOL?GICO DE DOS COMPONENTES [Suspect]
     Indication: NEUROSURGERY

REACTIONS (1)
  - Post procedural fistula [Unknown]
